FAERS Safety Report 4295118-0 (Version None)
Quarter: 2004Q1

REPORT INFORMATION
  Report Type: 
  Country: None (occurrence: None)
  Receive Date: 20040211
  Receipt Date: 20040129
  Transmission Date: 20041129
  Serious: No
  Sender: FDA-Public Use
  Company Number: 2004AP00536

PATIENT
  Age: 57 Year
  Sex: Male

DRUGS (19)
  1. IRESSA [Suspect]
     Indication: NON-SMALL CELL LUNG CANCER
     Dosage: 250 MG DAILY PO
     Route: 048
     Dates: start: 20040116, end: 20040127
  2. MITOMYCIN [Concomitant]
  3. VINDESINE [Concomitant]
  4. RADIATION THERAPY [Concomitant]
  5. PARIET [Concomitant]
  6. GANATON [Concomitant]
  7. MAG-LAX [Concomitant]
  8. LAC B [Concomitant]
  9. PURSENNID [Concomitant]
  10. LOXONIN [Concomitant]
  11. MOHRUS [Concomitant]
  12. TETRAMIDE [Concomitant]
  13. LASIX [Concomitant]
  14. TETRAMIDE [Concomitant]
  15. ENSURE [Concomitant]
  16. KENEI G [Concomitant]
  17. BISOPHONAL [Concomitant]
  18. ISOTONIC SODIUM CHLORIDE [Concomitant]
  19. CISPLATIN [Concomitant]

REACTIONS (1)
  - RADIATION PNEUMONITIS [None]
